FAERS Safety Report 17233215 (Version 1)
Quarter: 2020Q1

REPORT INFORMATION
  Report Type: Spontaneous
  Country: DE (occurrence: DE)
  Receive Date: 20200104
  Receipt Date: 20200104
  Transmission Date: 20200409
  Serious: Yes (Hospitalization)
  Sender: FDA-Public Use
  Company Number: DE-TEVA-2019-DE-1161104

PATIENT
  Age: 73 Year
  Sex: Female

DRUGS (4)
  1. CLOPIDOGREL [Suspect]
     Active Substance: CLOPIDOGREL BISULFATE
     Dosage: 75 MG, PAUSED SINCE 15.10.2019, TABLETS
     Dates: end: 20191014
  2. SIMVASTATIN 1A PHARMA [Concomitant]
     Active Substance: SIMVASTATIN
     Dosage: 40 MG, 0-0-0.5-0, TABLET
  3. ASS 100 - 1A PHARMA [Suspect]
     Active Substance: ASPIRIN
     Dosage: 100 MG, PAUSED SINCE 15.10.2019, TABLETS
     Dates: end: 20191014
  4. EUTHYROX [Concomitant]
     Active Substance: LEVOTHYROXINE SODIUM
     Dosage: 200 ?G, 0.5-0-0-0, TABLET

REACTIONS (4)
  - Dizziness [Unknown]
  - Product monitoring error [Unknown]
  - Haematochezia [Unknown]
  - Anaemia [Unknown]
